FAERS Safety Report 18336232 (Version 1)
Quarter: 2020Q4

REPORT INFORMATION
  Report Type: Spontaneous
  Country: US (occurrence: US)
  Receive Date: 20201001
  Receipt Date: 20201001
  Transmission Date: 20210113
  Serious: Yes (Other)
  Sender: FDA-Public Use
  Company Number: NVSC2020US266331

PATIENT
  Age: 22 Year
  Sex: Male

DRUGS (1)
  1. TRAMETINIB [Suspect]
     Active Substance: TRAMETINIB
     Indication: LANGERHANS^ CELL HISTIOCYTOSIS
     Dosage: 2 MG, QD (0.016 MG/KG)
     Route: 065

REACTIONS (6)
  - Blood creatine phosphokinase increased [Unknown]
  - Langerhans^ cell histiocytosis [Unknown]
  - Product use in unapproved indication [Unknown]
  - Rash [Unknown]
  - Therapy partial responder [Unknown]
  - Malignant neoplasm progression [Unknown]
